FAERS Safety Report 4706401-6 (Version None)
Quarter: 2005Q2

REPORT INFORMATION
  Report Type: 
  Country: None (occurrence: None)
  Receive Date: 20050112
  Receipt Date: 20050112
  Transmission Date: 20051028
  Serious: No
  Sender: FDA-Public Use
  Company Number: None

PATIENT
  Sex: Female
  Weight: 62.5964 kg

DRUGS (2)
  1. OXYCONTIN [Suspect]
     Indication: BACK PAIN
     Dosage: 80MG PO Q 6 HOURS
     Route: 048
  2. OXYCONTIN [Suspect]
     Indication: FRACTURE
     Dosage: 80MG PO Q 6 HOURS
     Route: 048

REACTIONS (3)
  - DRUG INTOLERANCE [None]
  - DYSPHAGIA [None]
  - PHARMACEUTICAL PRODUCT COMPLAINT [None]
